FAERS Safety Report 11661799 (Version 1)
Quarter: 2015Q4

REPORT INFORMATION
  Report Type: Spontaneous
  Country: US (occurrence: US)
  Receive Date: 20151026
  Receipt Date: 20151026
  Transmission Date: 20160304
  Serious: No
  Sender: FDA-Public Use
  Company Number: US-UPSHER-SMITH LABORATORIES, INC.-15000001

PATIENT
  Sex: Female

DRUGS (13)
  1. CARDIZEM [Concomitant]
     Active Substance: DILTIAZEM HYDROCHLORIDE
     Indication: ATRIAL FIBRILLATION
     Dosage: 240 MG, UNK
  2. HYDROCHLOROTHIAZIDE. [Concomitant]
     Active Substance: HYDROCHLOROTHIAZIDE
     Indication: HYPERTENSION
     Dosage: UNK
     Dates: start: 2014
  3. BROMELAIN [Concomitant]
     Active Substance: BROMELAINS
     Dosage: UNK
  4. CARDIZEM [Concomitant]
     Active Substance: DILTIAZEM HYDROCHLORIDE
     Indication: VENTRICULAR FLUTTER
  5. VITAMIN D [Concomitant]
     Active Substance: CHOLECALCIFEROL
     Dosage: UNK
  6. CHELATED MAGNESIUM [Concomitant]
     Indication: CONSTIPATION
     Dosage: UNK
  7. ASPIRIN. [Concomitant]
     Active Substance: ASPIRIN
     Dosage: UNK
  8. COQ10 [Concomitant]
     Active Substance: UBIDECARENONE
     Dosage: UNK
  9. FLAXSEED [Concomitant]
     Active Substance: FLAX SEED
     Dosage: UNK
  10. TURMERIC [Concomitant]
     Active Substance: TURMERIC
     Dosage: UNK
  11. OMEGA-3 ACIDS [Concomitant]
     Active Substance: OMEGA-3 FATTY ACIDS
     Dosage: UNK
  12. KLOR-CON M [Suspect]
     Active Substance: POTASSIUM CHLORIDE
     Indication: DRUG THERAPY
     Dosage: 10 MEQ, QD
     Route: 048
     Dates: start: 2006
  13. FOLIC ACID. [Concomitant]
     Active Substance: FOLIC ACID
     Dosage: UNK

REACTIONS (1)
  - Muscle spasms [Recovering/Resolving]

NARRATIVE: CASE EVENT DATE: 2013
